FAERS Safety Report 8854041 (Version 1)
Quarter: 2012Q4

REPORT INFORMATION
  Report Type: Spontaneous
  Country: US (occurrence: None)
  Receive Date: 20121019
  Receipt Date: 20121019
  Transmission Date: 20130627
  Serious: Yes (Other)
  Sender: FDA-Public Use
  Company Number: None

PATIENT
  Age: 59 Year
  Sex: Female
  Weight: 77.11 kg

DRUGS (1)
  1. ALDACTONE [Suspect]
     Indication: HAIR LOSS
     Dosage: 1 50mg tab x2 day
     Dates: start: 20120908, end: 20120925

REACTIONS (3)
  - Muscle spasms [None]
  - Muscle spasms [None]
  - Muscle spasms [None]
